FAERS Safety Report 6430446-1 (Version None)
Quarter: 2009Q4

REPORT INFORMATION
  Report Type: 
  Country: None (occurrence: None)
  Receive Date: 20091106
  Receipt Date: 20090720
  Transmission Date: 20100525
  Serious: Yes (Hospitalization, Other)
  Sender: FDA-Public Use
  Company Number: PHHY2009IN30160

PATIENT
  Age: 42 Year
  Sex: Male

DRUGS (16)
  1. CLOZAPINE [Suspect]
     Dosage: 25 MG/DAY
  2. CLOZAPINE [Suspect]
     Dosage: 300 MG/DAY
  3. CLOZAPINE [Suspect]
     Dosage: 350 MG/DAY
  4. CLOZAPINE [Suspect]
     Dosage: 300 MG/DAY
  5. CLOZAPINE [Suspect]
     Dosage: 350 MG/DAY
  6. OXCARBAZEPINE [Suspect]
     Dosage: 400 MG/DAY
  7. QUETIAPINE [Concomitant]
     Dosage: 600 MG/DAY
  8. VALPROATE SODIUM [Concomitant]
     Dosage: 1000 MG/DAY
  9. VALPROATE SODIUM [Concomitant]
     Dosage: 1000 MG/DAY
  10. VALPROATE SODIUM [Concomitant]
     Dosage: 1500 MG/DAY
  11. VALPROATE SODIUM [Concomitant]
     Dosage: 2000 MG/DAY
  12. VALPROATE SODIUM [Concomitant]
     Dosage: 1500 MG/DAY
  13. LITHIUM CARBONATE [Concomitant]
     Dosage: 900 MG/DAY
  14. CHLORPROMAZINE [Suspect]
     Dosage: 800 MG/DAY
  15. ARIPIPRAZOLE [Concomitant]
     Dosage: 15 MG/DAY
  16. MEMANTINE HCL [Concomitant]
     Dosage: 10 MG/DAY

REACTIONS (12)
  - AGGRESSION [None]
  - AGITATION [None]
  - BIPOLAR DISORDER [None]
  - CEREBRAL ATROPHY [None]
  - CONDITION AGGRAVATED [None]
  - DELIRIUM [None]
  - DISORIENTATION [None]
  - INSOMNIA [None]
  - IRRITABILITY [None]
  - LOGORRHOEA [None]
  - PSYCHOMOTOR HYPERACTIVITY [None]
  - SOMNOLENCE [None]
